FAERS Safety Report 9105216 (Version 3)
Quarter: 2013Q2

REPORT INFORMATION
  Report Type: Spontaneous
  Country: US (occurrence: US)
  Receive Date: 20130219
  Receipt Date: 20130410
  Transmission Date: 20140414
  Serious: Yes (Hospitalization, Other)
  Sender: FDA-Public Use
  Company Number: US-ASTELLAS-2013US001793

PATIENT
  Age: 56 Year
  Sex: Male

DRUGS (1)
  1. XTANDI [Suspect]
     Indication: PROSTATE CANCER
     Dosage: 160 MG, UID/QD
     Route: 048
     Dates: start: 201212

REACTIONS (19)
  - Haemorrhage intracranial [Unknown]
  - Device malfunction [Unknown]
  - Ureteric obstruction [Unknown]
  - Hemiparesis [Recovering/Resolving]
  - Hypocalcaemia [Unknown]
  - Renal failure chronic [Unknown]
  - Anaemia [Recovered/Resolved]
  - Malignant neoplasm progression [Unknown]
  - Escherichia sepsis [Unknown]
  - Cancer pain [Not Recovered/Not Resolved]
  - Urinary tract infection [Unknown]
  - Metastases to central nervous system [Unknown]
  - Pain in extremity [Not Recovered/Not Resolved]
  - Regurgitation [Unknown]
  - Weight increased [Unknown]
  - Decreased appetite [Unknown]
  - Dehydration [Unknown]
  - Dyspepsia [Unknown]
  - Weight decreased [Unknown]
